FAERS Safety Report 8605244-0 (Version None)
Quarter: 2012Q3

REPORT INFORMATION
  Report Type: 
  Country: None (occurrence: None)
  Receive Date: 20120807
  Receipt Date: 20120724
  Transmission Date: 20120928
  Serious: Yes (Hospitalization)
  Sender: FDA-Public Use
  Company Number: UTC-017961

PATIENT
  Age: 70 Year
  Sex: Male
  Weight: 90 kg

DRUGS (4)
  1. LETAIRIS [Concomitant]
  2. VIAGRA [Concomitant]
  3. TYVASO [Suspect]
     Indication: PULMONARY HYPERTENSION
     Dosage: 18 MCG, INHALATION
     Route: 055
     Dates: start: 20120418, end: 20120419
  4. REVATIO [Suspect]

REACTIONS (5)
  - CHRONIC OBSTRUCTIVE PULMONARY DISEASE [None]
  - OXYGEN SATURATION DECREASED [None]
  - CONDITION AGGRAVATED [None]
  - VENTILATION PERFUSION MISMATCH [None]
  - RIGHT VENTRICULAR FAILURE [None]
